FAERS Safety Report 10635867 (Version 1)
Quarter: 2014Q4

REPORT INFORMATION
  Report Type: Spontaneous
  Country: TR (occurrence: TR)
  Receive Date: 20141205
  Receipt Date: 20141205
  Transmission Date: 20150529
  Serious: Yes (Hospitalization)
  Sender: FDA-Public Use
  Company Number: PHHY2014TR155841

PATIENT
  Age: 73 Year
  Sex: Female

DRUGS (3)
  1. DEXAMETHASONE. [Suspect]
     Active Substance: DEXAMETHASONE
     Indication: HYPOAESTHESIA
     Dosage: 16 MG, UNK
     Route: 037
  2. LIDOCAINE. [Concomitant]
     Active Substance: LIDOCAINE
     Indication: PRODUCT USED FOR UNKNOWN INDICATION
     Dosage: 60 MG, UNK
     Route: 065
  3. DEXAMETHASONE. [Suspect]
     Active Substance: DEXAMETHASONE
     Indication: MOTOR DYSFUNCTION

REACTIONS (5)
  - Muscle twitching [Recovered/Resolved]
  - Wrong technique in drug usage process [Unknown]
  - Spinal pain [Recovered/Resolved]
  - Muscle spasms [Recovered/Resolved]
  - Myoclonus [Recovered/Resolved]
